FAERS Safety Report 4738304-5 (Version None)
Quarter: 2005Q3

REPORT INFORMATION
  Report Type: 
  Country: None (occurrence: None)
  Receive Date: 20050803
  Receipt Date: 20050427
  Transmission Date: 20060218
  Serious: Yes (Hospitalization)
  Sender: FDA-Public Use
  Company Number: 6014209

PATIENT
  Age: 64 Year
  Sex: Male

DRUGS (6)
  1. GLUCOVANCE 2.5 MG/500 MG (TABLET) (METFORMIN HYDROCHLORIDE, GLIBENCLAM [Suspect]
     Indication: DIABETES MELLITUS NON-INSULIN-DEPENDENT
     Dosage: 2 DOSAGE FORMS (2 DOSAGE FORMS, 1 D)
     Route: 048
     Dates: start: 20050403, end: 20050410
  2. DETENSIEL (TABLET) (BISOPROLOL FUMARATE) [Suspect]
     Dosage: 1 DOSAGE FORMS (1 DOSAGE FORMS 1 D)
     Route: 048
     Dates: start: 20030101
  3. ALDACTAZINE (TABLET) (SPIRONOLACTONE, ALTIZIDE) [Concomitant]
  4. MICARDIS (TABLET) (TELMISARTAN) [Concomitant]
  5. PREVISCAN (FLUINDIONE) [Concomitant]
  6. FRACTAL (FLUVASTATIN) [Concomitant]

REACTIONS (3)
  - HYPOGLYCAEMIC COMA [None]
  - INCORRECT DOSE ADMINISTERED [None]
  - WEIGHT LOSS DIET [None]
